FAERS Safety Report 9982182 (Version 1)
Quarter: 2014Q1

REPORT INFORMATION
  Report Type: Spontaneous
  Country: US (occurrence: None)
  Receive Date: 20140127
  Receipt Date: 20140127
  Transmission Date: 20141002
  Serious: Yes (Other)
  Sender: FDA-Public Use
  Company Number: 1229894

PATIENT
  Age: 53 Year
  Sex: Male

DRUGS (2)
  1. RITUXIMAB (RITUXIMAB) [Suspect]
     Indication: NON-HODGKIN^S LYMPHOMA
  2. FLUDARABINE (FLUDARABINE PHOSPHATE) [Suspect]
     Indication: NON-HODGKIN^S LYMPHOMA

REACTIONS (2)
  - Dyspnoea [None]
  - Flushing [None]
